FAERS Safety Report 11229580 (Version 2)
Quarter: 2015Q3

REPORT INFORMATION
  Report Type: Spontaneous
  Country: US (occurrence: US)
  Receive Date: 20150630
  Receipt Date: 20150702
  Transmission Date: 20151125
  Serious: No
  Sender: FDA-Public Use
  Company Number: US-009507513-1506USA004693

PATIENT
  Age: 71 Year
  Sex: Male

DRUGS (5)
  1. ZETIA [Suspect]
     Active Substance: EZETIMIBE
     Dosage: 1 ONE PILL BY MOUTH EVERY MORNING
     Route: 048
     Dates: start: 20150518, end: 201506
  2. LOSARTAN. [Concomitant]
     Active Substance: LOSARTAN
     Indication: BLOOD PRESSURE ABNORMAL
  3. PANTOPRAZOLE [Concomitant]
     Active Substance: PANTOPRAZOLE SODIUM
     Indication: GASTROOESOPHAGEAL REFLUX DISEASE
  4. METFORMIN [Concomitant]
     Active Substance: METFORMIN HYDROCHLORIDE
     Indication: DIABETES MELLITUS
  5. ZETIA [Suspect]
     Active Substance: EZETIMIBE
     Indication: HIGH DENSITY LIPOPROTEIN ABNORMAL
     Dosage: 1 ONE PILL BY MOUTH EVERY MORNING
     Route: 048
     Dates: start: 20150607

REACTIONS (3)
  - Feeling abnormal [Unknown]
  - Feeling abnormal [Recovered/Resolved]
  - Fatigue [Recovered/Resolved]

NARRATIVE: CASE EVENT DATE: 201505
